FAERS Safety Report 7031623-1 (Version None)
Quarter: 2010Q4

REPORT INFORMATION
  Report Type: 
  Country: None (occurrence: None)
  Receive Date: 20101006
  Receipt Date: 20101006
  Transmission Date: 20110411
  Serious: No
  Sender: FDA-Public Use
  Company Number: None

PATIENT

DRUGS (1)
  1. KEFLEX [Suspect]
     Dosage: KEFLEX 250 MG PO FOUR TIMES DAILY X 7 DAYS STARTED 9/8/10
     Route: 048
     Dates: start: 20100908

REACTIONS (1)
  - RASH [None]
